FAERS Safety Report 22077412 (Version 3)
Quarter: 2023Q1

REPORT INFORMATION
  Report Type: Spontaneous
  Country: SA (occurrence: SA)
  Receive Date: 20230309
  Receipt Date: 20230321
  Transmission Date: 20230418
  Serious: Yes (Hospitalization, Other)
  Sender: FDA-Public Use
  Company Number: SA-Accord-302569

PATIENT
  Age: 54 Year
  Sex: Female
  Weight: 75 kg

DRUGS (7)
  1. GEMCITABINE [Suspect]
     Active Substance: GEMCITABINE
     Indication: Hormone receptor positive breast cancer
     Dosage: FOURTH CYCLE
  2. PACLITAXEL [Concomitant]
     Active Substance: PACLITAXEL
     Indication: Hormone receptor positive breast cancer
  3. TRASTUZUMAB [Concomitant]
     Active Substance: TRASTUZUMAB
     Indication: Hormone receptor positive breast cancer
  4. MORPHINE [Concomitant]
     Active Substance: MORPHINE
     Indication: Pain
     Dosage: 2 DOSES
  5. GEMCITABINE [Suspect]
     Active Substance: GEMCITABINE
     Indication: Breast cancer metastatic
     Dosage: FOURTH CYCLE
  6. PACLITAXEL [Concomitant]
     Active Substance: PACLITAXEL
     Indication: Breast cancer metastatic
  7. TRASTUZUMAB [Concomitant]
     Active Substance: TRASTUZUMAB
     Indication: Breast cancer metastatic

REACTIONS (2)
  - Myositis [Recovered/Resolved]
  - Rhabdomyolysis [Recovered/Resolved]
